FAERS Safety Report 8006861-1 (Version None)
Quarter: 2011Q4

REPORT INFORMATION
  Report Type: 
  Country: None (occurrence: None)
  Receive Date: 20111227
  Receipt Date: 20111216
  Transmission Date: 20120403
  Serious: Yes (Other)
  Sender: FDA-Public Use
  Company Number: US-BAYER-2011-029282

PATIENT
  Sex: Female
  Weight: 79.365 kg

DRUGS (10)
  1. CROMOLYN SODIUM [Concomitant]
     Dosage: UNK
     Dates: start: 20090421
  2. ALBUTEROL [Concomitant]
     Dosage: UNK
     Dates: start: 20090421
  3. YAZ [Suspect]
     Indication: CONTRACEPTION
     Dosage: UNK
     Route: 048
     Dates: start: 20080101, end: 20090101
  4. CITALOPRAM [Concomitant]
     Dosage: 20 MG, UNK
     Route: 048
     Dates: start: 20090211
  5. ONDANSETRON [Concomitant]
     Dosage: 4 MG, UNK
     Route: 048
     Dates: start: 20090218
  6. FLOMAX [Concomitant]
     Dosage: 0.4 MG, UNK
     Route: 048
     Dates: start: 20090201
  7. OXYCODONE HCL AND ACETAMINOPHEN [Concomitant]
     Dosage: 5 MG, UNK
     Route: 048
     Dates: start: 20090218
  8. RISPERIDONE [Concomitant]
     Dosage: 0.5 MG, UNK
     Route: 048
     Dates: start: 20090211
  9. CEFUROXIME [Concomitant]
     Dosage: 500 MG, UNK
     Route: 048
     Dates: start: 20090127
  10. OXYCODONE HCL AND ACETAMINOPHEN [Concomitant]
     Dosage: 325 MG, UNK
     Route: 048
     Dates: start: 20090218

REACTIONS (4)
  - PERIPHERAL NERVE INJURY [None]
  - PAIN [None]
  - CHOLELITHIASIS [None]
  - INJURY [None]
